FAERS Safety Report 23539776 (Version 1)
Quarter: 2024Q1

REPORT INFORMATION
  Report Type: Spontaneous
  Country: US (occurrence: US)
  Receive Date: 20240219
  Receipt Date: 20240219
  Transmission Date: 20240409
  Serious: No
  Sender: FDA-Public Use
  Company Number: US-CTI BIOPHARMA-2024US04487

PATIENT

DRUGS (35)
  1. VONJO [Suspect]
     Active Substance: PACRITINIB
     Indication: Breast cancer
     Dosage: 200 MG, BID
     Route: 048
     Dates: start: 20240123
  2. SANDOSTATIN [Concomitant]
     Active Substance: OCTREOTIDE ACETATE
  3. MYRBETRIQ [Concomitant]
     Active Substance: MIRABEGRON
  4. SPIRONOLACTONE [Concomitant]
     Active Substance: SPIRONOLACTONE
  5. JARDIANCE [Concomitant]
     Active Substance: EMPAGLIFLOZIN
  6. PREGABALIN [Concomitant]
     Active Substance: PREGABALIN
  7. AUGMENTIN [Concomitant]
     Active Substance: AMOXICILLIN\CLAVULANATE POTASSIUM
  8. ALLOPURINOL [Concomitant]
     Active Substance: ALLOPURINOL
  9. AMBIEN [Concomitant]
     Active Substance: ZOLPIDEM TARTRATE
  10. ARANESP [Concomitant]
     Active Substance: DARBEPOETIN ALFA
  11. ARIMIDEX [Concomitant]
     Active Substance: ANASTROZOLE
  12. CALTRATE [Concomitant]
     Active Substance: CALCIUM CARBONATE
  13. CIPROFLOXACIN [Concomitant]
     Active Substance: CIPROFLOXACIN
  14. DIGOXIN [Concomitant]
     Active Substance: DIGOXIN
  15. DILTIAZEM [Concomitant]
     Active Substance: DILTIAZEM
  16. ELIQUIS [Concomitant]
     Active Substance: APIXABAN
  17. FOLIC ACID [Concomitant]
     Active Substance: FOLIC ACID
  18. GEMTESA [Concomitant]
     Active Substance: VIBEGRON
  19. LASIX [Concomitant]
     Active Substance: FUROSEMIDE
  20. LEVOTHYROXINE [Concomitant]
     Active Substance: LEVOTHYROXINE\LEVOTHYROXINE SODIUM
  21. LYRICA [Concomitant]
     Active Substance: PREGABALIN
  22. MAGNESIUM [Concomitant]
     Active Substance: MAGNESIUM
  23. MECLIZINE [Concomitant]
     Active Substance: MECLIZINE HYDROCHLORIDE
  24. METOPROLOL [Concomitant]
     Active Substance: METOPROLOL
  25. NEURONTIN [Concomitant]
     Active Substance: GABAPENTIN
  26. ONDANSETRON [Concomitant]
     Active Substance: ONDANSETRON
  27. PROBIOTICS NOS [Concomitant]
     Active Substance: PROBIOTICS NOS
  28. PROCRIT [Concomitant]
     Active Substance: ERYTHROPOIETIN
  29. MAGNESIUM CHLORIDE [Concomitant]
     Active Substance: MAGNESIUM CHLORIDE
  30. TOPROL XL [Concomitant]
     Active Substance: METOPROLOL SUCCINATE
  31. VITAMIN B COMPLEX [Concomitant]
     Active Substance: CYANOCOBALAMIN\DEXPANTHENOL\NIACINAMIDE\PYRIDOXINE HYDROCHLORIDE\RIBOFLAVIN 5^-PHOSPHATE SODIUM\THIA
  32. ZOLPIDEM [Concomitant]
     Active Substance: ZOLPIDEM TARTRATE
  33. TORSEMIDE [Concomitant]
     Active Substance: TORSEMIDE
  34. PANTOPRAZOLE [Concomitant]
     Active Substance: PANTOPRAZOLE
  35. OCTREOTIDE [Concomitant]
     Active Substance: OCTREOTIDE\OCTREOTIDE ACETATE

REACTIONS (3)
  - Brain natriuretic peptide increased [Unknown]
  - Off label use [Unknown]
  - Dyspnoea [Unknown]
